FAERS Safety Report 5799884-4 (Version None)
Quarter: 2008Q3

REPORT INFORMATION
  Report Type: 
  Country: None (occurrence: None)
  Receive Date: 20080701
  Receipt Date: 20080618
  Transmission Date: 20090109
  Serious: Yes (Death)
  Sender: FDA-Public Use
  Company Number: 2008AL007250

PATIENT
  Age: 62 Year
  Sex: Female

DRUGS (1)
  1. DIGOXIN [Suspect]
     Indication: ARRHYTHMIA
     Dosage: 0.25MG, QD, PO
     Route: 048
     Dates: start: 20070801

REACTIONS (4)
  - CARDIAC ARREST [None]
  - DYSPNOEA [None]
  - HEART RATE INCREASED [None]
  - SUDDEN DEATH [None]
